FAERS Safety Report 20379088 (Version 3)
Quarter: 2022Q1

REPORT INFORMATION
  Report Type: Spontaneous
  Country: US (occurrence: US)
  Receive Date: 20220126
  Receipt Date: 20220307
  Transmission Date: 20220423
  Serious: No
  Sender: FDA-Public Use
  Company Number: US-PFIZER INC-202101487312

PATIENT
  Age: 75 Year
  Sex: Female

DRUGS (5)
  1. IBRANCE [Suspect]
     Active Substance: PALBOCICLIB
     Dosage: 125 MG,UNK
     Dates: start: 20211015
  2. IBRANCE [Suspect]
     Active Substance: PALBOCICLIB
     Dosage: 125 MG,UNK
     Dates: start: 20210924, end: 20211015
  3. IBRANCE [Suspect]
     Active Substance: PALBOCICLIB
     Dosage: 75 MG, CYCLIC(1 DAY ON, 2 DAYS OFF)
     Dates: start: 20210701
  4. IBRANCE [Suspect]
     Active Substance: PALBOCICLIB
     Dosage: 75 MG(EVERY MONDAYS AND THURSDAYS)
     Dates: start: 20210901
  5. IBRANCE [Suspect]
     Active Substance: PALBOCICLIB
     Dosage: 75 MG((EVERY 4TH DAY)

REACTIONS (10)
  - Full blood count decreased [Unknown]
  - Product dose omission issue [Unknown]
  - Eye pain [Recovered/Resolved]
  - Alopecia [Unknown]
  - Stomatitis [Unknown]
  - Neutrophil count decreased [Unknown]
  - Product use complaint [Unknown]
  - Off label use [Unknown]
  - Product use issue [Unknown]
  - Bone pain [Unknown]

NARRATIVE: CASE EVENT DATE: 20210101
